FAERS Safety Report 8849081 (Version 2)
Quarter: 2013Q2

REPORT INFORMATION
  Report Type: Spontaneous
  Country: US (occurrence: None)
  Receive Date: 20120426
  Receipt Date: 20120703
  Transmission Date: 20140414
  Serious: No
  Sender: FDA-Public Use
  Company Number: PHEH2012US002177

PATIENT
  Age: 9 Year
  Sex: Male

DRUGS (1)
  1. GILENYA [Suspect]
     Indication: RELAPSING-REMITTING MULTIPLE SCLEROSIS
     Route: 048
     Dates: start: 20110615, end: 20120125

REACTIONS (3)
  - White blood cell count decreased [None]
  - Drug administered to patient of inappropriate age [None]
  - Inappropriate schedule of drug administration [None]
